FAERS Safety Report 15205908 (Version 5)
Quarter: 2024Q3

REPORT INFORMATION
  Report Type: Spontaneous
  Country: PL (occurrence: PL)
  Receive Date: 20180727
  Receipt Date: 20240925
  Transmission Date: 20241016
  Serious: Yes (Other)
  Sender: AUROBINDO
  Company Number: PL-AUROBINDO-AUR-APL-2018-037405

PATIENT
  Age: 65 Year
  Sex: Female

DRUGS (37)
  1. ATORVASTATIN [Interacting]
     Active Substance: ATORVASTATIN
     Indication: Hyperlipidaemia
     Dosage: 20 MILLIGRAM, DAILY
     Route: 065
  2. ATORVASTATIN [Interacting]
     Active Substance: ATORVASTATIN
     Indication: Hypertension
  3. ATORVASTATIN [Interacting]
     Active Substance: ATORVASTATIN
     Indication: Arrhythmia supraventricular
  4. AMLODIPINE [Interacting]
     Active Substance: AMLODIPINE BESYLATE
     Indication: Arrhythmia supraventricular
     Dosage: 5 MILLIGRAM, DAILY
     Route: 065
  5. AMLODIPINE [Interacting]
     Active Substance: AMLODIPINE BESYLATE
     Indication: Hypertension
  6. AMLODIPINE [Interacting]
     Active Substance: AMLODIPINE BESYLATE
     Indication: Hyperlipidaemia
  7. AMITRIPTYLINE [Suspect]
     Active Substance: AMITRIPTYLINE
     Indication: Depression
     Dosage: 225 MILLIGRAM, DAILY
     Route: 065
  8. LAMOTRIGINE [Interacting]
     Active Substance: LAMOTRIGINE
     Indication: Depression
     Dosage: 150 MILLIGRAM, DAILY
     Route: 065
  9. SERTRALINE [Suspect]
     Active Substance: SERTRALINE HYDROCHLORIDE
     Indication: Depression
     Dosage: 100 MILLIGRAM, DAILY (100 MG IN THE MORNING)
     Route: 065
  10. SERTRALINE [Suspect]
     Active Substance: SERTRALINE HYDROCHLORIDE
     Indication: Antidepressant therapy
  11. ASPIRIN [Interacting]
     Active Substance: ASPIRIN
     Indication: Arrhythmia
     Dosage: 75 MILLIGRAM, DAILY
     Route: 065
  12. ASPIRIN [Interacting]
     Active Substance: ASPIRIN
     Indication: Hypotension
  13. ASPIRIN [Interacting]
     Active Substance: ASPIRIN
     Indication: Hyperlipidaemia
  14. ASPIRIN [Interacting]
     Active Substance: ASPIRIN
     Indication: Hypertension
  15. SULPIRIDE ADAMANTANECARBOXYLATE [Interacting]
     Active Substance: SULPIRIDE ADAMANTANECARBOXYLATE
     Indication: Depression
     Dosage: 150 MILLIGRAM, DAILY
     Route: 065
  16. SULPIRIDE ADAMANTANECARBOXYLATE [Interacting]
     Active Substance: SULPIRIDE ADAMANTANECARBOXYLATE
     Dosage: 50 MILLIGRAM, DAILY
     Route: 065
  17. SULPIRIDE ADAMANTANECARBOXYLATE [Interacting]
     Active Substance: SULPIRIDE ADAMANTANECARBOXYLATE
     Dosage: 10 MILLIGRAM, ONCE A DAY
     Route: 065
  18. BUSPIRONE HYDROCHLORIDE [Interacting]
     Active Substance: BUSPIRONE HYDROCHLORIDE
     Indication: Depression
     Dosage: 10 MILLIGRAM, DAILY
     Route: 065
  19. PROPAFENONE HYDROCHLORIDE [Suspect]
     Active Substance: PROPAFENONE HYDROCHLORIDE
     Indication: Arrhythmia
     Dosage: 450 MILLIGRAM, DAILY
     Route: 065
  20. PROPAFENONE HYDROCHLORIDE [Suspect]
     Active Substance: PROPAFENONE HYDROCHLORIDE
     Indication: Arrhythmia supraventricular
     Dosage: 150 MILLIGRAM, ONCE A DAY
     Route: 065
  21. PROPAFENONE HYDROCHLORIDE [Suspect]
     Active Substance: PROPAFENONE HYDROCHLORIDE
     Indication: Hyperlipidaemia
  22. PROPAFENONE HYDROCHLORIDE [Suspect]
     Active Substance: PROPAFENONE HYDROCHLORIDE
     Indication: Hypertension
  23. LEVOMEPROMAZINE [Suspect]
     Active Substance: LEVOMEPROMAZINE
     Indication: Depression
     Dosage: 50 MILLIGRAM, ONCE A DAY AT BEDTIME
     Route: 065
  24. LANSOPRAZOLE [Interacting]
     Active Substance: LANSOPRAZOLE
     Indication: Hypotension
     Dosage: 15 MILLIGRAM, DAILY
     Route: 065
  25. LANSOPRAZOLE [Interacting]
     Active Substance: LANSOPRAZOLE
     Indication: Hyperlipidaemia
  26. LANSOPRAZOLE [Interacting]
     Active Substance: LANSOPRAZOLE
     Indication: Hypertension
  27. LANSOPRAZOLE [Interacting]
     Active Substance: LANSOPRAZOLE
     Indication: Arrhythmia supraventricular
  28. CANDESARTAN CILEXETIL AND HYDROCHLOROTHIAZIDE [Interacting]
     Active Substance: CANDESARTAN CILEXETIL\HYDROCHLOROTHIAZIDE
     Indication: Hypertension
     Dosage: 16 MG + 12.5 MG DAILY
     Route: 065
  29. CANDESARTAN CILEXETIL AND HYDROCHLOROTHIAZIDE [Interacting]
     Active Substance: CANDESARTAN CILEXETIL\HYDROCHLOROTHIAZIDE
     Dosage: 1 DOSAGE FORM, ONCE A DAY
     Route: 065
  30. VINPOCETINE [Interacting]
     Active Substance: VINPOCETINE
     Indication: Depression
     Dosage: 15 MILLIGRAM, DAILY
     Route: 065
  31. PERAZINE [Suspect]
     Active Substance: PERAZINE
     Indication: Depression
     Dosage: 75 MILLIGRAM, DAILY
     Route: 065
  32. ENALAPRIL\HYDROCHLOROTHIAZIDE [Suspect]
     Active Substance: ENALAPRIL\HYDROCHLOROTHIAZIDE
     Indication: Arrhythmia supraventricular
     Dosage: 16+12.5 MILLIGRAM
     Route: 065
  33. ENALAPRIL\HYDROCHLOROTHIAZIDE [Suspect]
     Active Substance: ENALAPRIL\HYDROCHLOROTHIAZIDE
     Indication: Hypertension
  34. ENALAPRIL\HYDROCHLOROTHIAZIDE [Suspect]
     Active Substance: ENALAPRIL\HYDROCHLOROTHIAZIDE
     Indication: Hyperlipidaemia
  35. TORSEMIDE [Concomitant]
     Active Substance: TORSEMIDE
     Indication: Hypertension
     Dosage: UNK
     Route: 065
  36. LISINOPRIL [Concomitant]
     Active Substance: LISINOPRIL
     Indication: Hypertension
     Dosage: UNK
     Route: 065
  37. PREGABALIN [Concomitant]
     Active Substance: PREGABALIN
     Indication: Product used for unknown indication
     Dosage: UNK
     Route: 065

REACTIONS (28)
  - Somnolence [Recovered/Resolved]
  - Anxiety [Recovered/Resolved]
  - Cognitive disorder [Recovered/Resolved]
  - Extrapyramidal disorder [Recovered/Resolved]
  - Dizziness [Recovered/Resolved]
  - Balance disorder [Recovered/Resolved]
  - Drug interaction [Recovering/Resolving]
  - Nervous system disorder [Recovered/Resolved]
  - Mental disorder [Recovering/Resolving]
  - Sleep deficit [Recovered/Resolved]
  - Fatigue [Recovered/Resolved]
  - Anhedonia [Recovered/Resolved]
  - Drug ineffective [Recovered/Resolved]
  - Depressed mood [Recovering/Resolving]
  - Insomnia [Recovering/Resolving]
  - Bradykinesia [Recovered/Resolved]
  - Psychomotor retardation [Recovering/Resolving]
  - Overweight [Unknown]
  - Flat affect [Recovering/Resolving]
  - Depression [Recovering/Resolving]
  - Sleep disorder [Recovering/Resolving]
  - Emotional disorder [Recovering/Resolving]
  - Amnesia [Recovering/Resolving]
  - Tension [Recovering/Resolving]
  - Fall [Recovered/Resolved]
  - Disturbance in attention [Recovering/Resolving]
  - Headache [Unknown]
  - Joint swelling [Unknown]
